FAERS Safety Report 9525323 (Version 2)
Quarter: 2013Q4

REPORT INFORMATION
  Report Type: Spontaneous
  Country: US (occurrence: US)
  Receive Date: 20130916
  Receipt Date: 20131022
  Transmission Date: 20140711
  Serious: Yes (Life-Threatening, Hospitalization)
  Sender: FDA-Public Use
  Company Number: US-JNJFOC-20130906561

PATIENT
  Age: 58 Year
  Sex: Female
  Weight: 91.22 kg

DRUGS (1)
  1. INVOKANA [Suspect]
     Indication: DIABETES MELLITUS
     Route: 048
     Dates: start: 20130606, end: 20130906

REACTIONS (4)
  - Renal failure acute [Unknown]
  - Hypotension [Unknown]
  - Bacterial sepsis [Recovering/Resolving]
  - Urinary tract infection [Recovering/Resolving]
